FAERS Safety Report 7118963-2 (Version None)
Quarter: 2010Q4

REPORT INFORMATION
  Report Type: 
  Country: None (occurrence: None)
  Receive Date: 20101123
  Receipt Date: 20101115
  Transmission Date: 20110411
  Serious: Yes (Hospitalization, Other)
  Sender: FDA-Public Use
  Company Number: US-AMGEN-QUU367091

PATIENT

DRUGS (3)
  1. ENBREL [Suspect]
     Indication: RHEUMATOID ARTHRITIS
     Dosage: 50 MG, QWK
     Route: 058
     Dates: start: 20040806, end: 20101001
  2. ENBREL [Suspect]
     Dosage: 50 MG, QWK
     Dates: start: 20040806, end: 20101001
  3. METHOTREXATE [Concomitant]
     Dosage: 15 MG, QWK

REACTIONS (4)
  - COLOSTOMY INFECTION [None]
  - EYELID DISORDER [None]
  - INTESTINAL PERFORATION [None]
  - POST PROCEDURAL CELLULITIS [None]
